FAERS Safety Report 5240426-X (Version None)
Quarter: 2007Q1

REPORT INFORMATION
  Report Type: 
  Country: None (occurrence: None)
  Receive Date: 20070219
  Receipt Date: 20070205
  Transmission Date: 20070707
  Serious: Yes (Hospitalization)
  Sender: FDA-Public Use
  Company Number: PHBS2007BR02544

PATIENT
  Age: 70 Year
  Sex: Female
  Weight: 67 kg

DRUGS (3)
  1. LOSARTAN POTASSIUM [Concomitant]
     Indication: HYPERTENSION
     Dosage: UNK, QD
     Route: 048
  2. FUROSEMIDE [Concomitant]
     Indication: DIURETIC THERAPY
     Dosage: UNK, QD
     Route: 048
  3. SLOW-K [Suspect]
     Indication: MUSCLE SPASMS
     Dosage: 600 MG, TID
     Route: 048

REACTIONS (1)
  - CEREBROVASCULAR ACCIDENT [None]
